FAERS Safety Report 14994336 (Version 1)
Quarter: 2018Q2

REPORT INFORMATION
  Report Type: Spontaneous
  Country: US (occurrence: US)
  Receive Date: 20180611
  Receipt Date: 20180611
  Transmission Date: 20180711
  Serious: No
  Sender: FDA-Public Use
  Company Number: US-LUPIN PHARMACEUTICALS INC.-2018-03050

PATIENT
  Age: 69 Year
  Sex: Female

DRUGS (4)
  1. AZITHROMYCIN TABLETS USP, 250 MG [Suspect]
     Active Substance: AZITHROMYCIN ANHYDROUS
     Dosage: 250 MG, SINGLE
     Route: 048
     Dates: start: 20180406
  2. MULTIVITAMIN                       /00097801/ [Concomitant]
     Active Substance: VITAMINS
     Indication: SUPPLEMENTATION THERAPY
     Dosage: UNK (DAILY)
     Route: 048
  3. AZITHROMYCIN TABLETS USP, 250 MG [Suspect]
     Active Substance: AZITHROMYCIN ANHYDROUS
     Indication: GINGIVITIS
     Dosage: 250 MG, BID (500 MG ON DAY ONE)
     Route: 048
     Dates: start: 20180405
  4. MAGNESIUM                          /00082501/ [Concomitant]
     Active Substance: ALUMINUM HYDROXIDE\MAGNESIUM HYDROXIDE
     Indication: SUPPLEMENTATION THERAPY
     Dosage: UNK
     Route: 048

REACTIONS (3)
  - Gingival pain [Not Recovered/Not Resolved]
  - Gingival disorder [Not Recovered/Not Resolved]
  - Drug ineffective for unapproved indication [Not Recovered/Not Resolved]

NARRATIVE: CASE EVENT DATE: 201804
